FAERS Safety Report 6028579-7 (Version None)
Quarter: 2008Q4

REPORT INFORMATION
  Report Type: 
  Country: None (occurrence: None)
  Receive Date: 20081222
  Receipt Date: 20081031
  Transmission Date: 20090506
  Serious: No
  Sender: FDA-Public Use
  Company Number: US-WYE-H06648608

PATIENT
  Age: 52 Year
  Sex: Female
  Weight: 70.82 kg

DRUGS (13)
  1. PRISTIQ [Suspect]
     Indication: DEPRESSION
     Dosage: 50 MG 1X PER 1 DAY, ORAL
     Route: 048
     Dates: start: 20081010
  2. COPAXONE [Concomitant]
  3. LAMICTAL [Concomitant]
  4. IMIPRAMINE [Concomitant]
  5. LEXAPRO [Concomitant]
  6. LORAZEPAM [Concomitant]
  7. HYZAAR [Concomitant]
  8. CENTRUM (MULTIVITAMIN/MULTIMINERAL) [Concomitant]
  9. CALCIUM WITH VITAMIN D (CALCIUM PHOSPHATE/CALCIUM SODIUM LACTATE/ERGOC [Concomitant]
  10. TIMOPTIC-XE (TIMOLOL MALEATE) [Concomitant]
  11. FIBRE, DIETARY (FIBRE, DIETARY) [Concomitant]
  12. TRAZODONE HCL [Concomitant]
  13. MOTRIN [Concomitant]

REACTIONS (2)
  - INSOMNIA [None]
  - VAGINAL HAEMORRHAGE [None]
